FAERS Safety Report 6736634-9 (Version None)
Quarter: 2010Q2

REPORT INFORMATION
  Report Type: 
  Country: None (occurrence: None)
  Receive Date: 20100520
  Receipt Date: 20100520
  Transmission Date: 20101027
  Serious: Yes (Life-Threatening, Hospitalization, Disabling)
  Sender: FDA-Public Use
  Company Number: None

PATIENT
  Sex: Male
  Weight: 95.5 kg

DRUGS (1)
  1. CRESTOR [Suspect]
     Indication: BLOOD CHOLESTEROL INCREASED
     Dosage: 10MG QD ORAL
     Route: 048
     Dates: start: 20091101, end: 20100131

REACTIONS (7)
  - BLOOD GLUCOSE INCREASED [None]
  - FOOD INTOLERANCE [None]
  - GASTROOESOPHAGEAL REFLUX DISEASE [None]
  - HEPATIC NECROSIS [None]
  - HEPATITIS [None]
  - PRURITUS [None]
  - PYREXIA [None]
